FAERS Safety Report 4896873-9 (Version None)
Quarter: 2006Q1

REPORT INFORMATION
  Report Type: 
  Country: None (occurrence: None)
  Receive Date: 20060126
  Receipt Date: 20060111
  Transmission Date: 20060701
  Serious: Yes (Hospitalization)
  Sender: FDA-Public Use
  Company Number: 200510686BYL

PATIENT
  Age: 50 Year
  Sex: Female

DRUGS (5)
  1. ADALAT [Suspect]
     Indication: BLOOD PRESSURE DIASTOLIC INCREASED
     Dosage: 20 MG, QD, ORAL
     Route: 048
     Dates: start: 20050601, end: 20050914
  2. ADALAT [Suspect]
     Indication: BLOOD PRESSURE INCREASED
     Dosage: 20 MG, QD, ORAL
     Route: 048
     Dates: start: 20050601, end: 20050914
  3. BLOPRESS [Concomitant]
  4. NORVASC [Concomitant]
  5. ALLEGRA [Concomitant]

REACTIONS (2)
  - BLOOD PRESSURE DIASTOLIC DECREASED [None]
  - CEREBRAL INFARCTION [None]
